FAERS Safety Report 12632739 (Version 2)
Quarter: 2016Q3

REPORT INFORMATION
  Report Type: Spontaneous
  Country: US (occurrence: US)
  Receive Date: 20160808
  Receipt Date: 20160808
  Transmission Date: 20161109
  Serious: No
  Sender: FDA-Public Use
  Company Number: US-BEH-2015056693

PATIENT
  Sex: Male
  Weight: 18.6 kg

DRUGS (15)
  1. ZYRTEC [Concomitant]
     Active Substance: CETIRIZINE HYDROCHLORIDE
  2. VITAMIN D3 [Concomitant]
     Active Substance: CHOLECALCIFEROL
  3. FLONASE [Concomitant]
     Active Substance: FLUTICASONE PROPIONATE
  4. ALBUTEROL SULFATE. [Concomitant]
     Active Substance: ALBUTEROL SULFATE
  5. ACETAMINOPHEN. [Concomitant]
     Active Substance: ACETAMINOPHEN
  6. LIDOCAINE. [Concomitant]
     Active Substance: LIDOCAINE
  7. AMOXICILLIN. [Concomitant]
     Active Substance: AMOXICILLIN
  8. NEXIUM [Concomitant]
     Active Substance: ESOMEPRAZOLE MAGNESIUM
  9. CYPROHEPTADINE. [Concomitant]
     Active Substance: CYPROHEPTADINE
  10. HIZENTRA [Suspect]
     Active Substance: HUMAN IMMUNOGLOBULIN G
     Indication: HUMORAL IMMUNE DEFECT
     Route: 058
  11. PULMOZYME [Concomitant]
     Active Substance: DORNASE ALFA
  12. MULTIVITAMIN [Concomitant]
     Active Substance: VITAMINS
  13. SYMBICORT [Concomitant]
     Active Substance: BUDESONIDE\FORMOTEROL FUMARATE DIHYDRATE
  14. DIPHENHYDRAMINE. [Concomitant]
     Active Substance: DIPHENHYDRAMINE
  15. EPIPEN JR [Concomitant]
     Active Substance: EPINEPHRINE

REACTIONS (5)
  - Pruritus [Unknown]
  - Rash [Unknown]
  - Nasopharyngitis [Unknown]
  - Blister [Unknown]
  - Diarrhoea [Unknown]
